FAERS Safety Report 16933108 (Version 10)
Quarter: 2022Q1

REPORT INFORMATION
  Report Type: Report from Study
  Country: GB (occurrence: None)
  Receive Date: 20191018
  Receipt Date: 20220129
  Transmission Date: 20220424
  Serious: Yes (Hospitalization)
  Sender: FDA-Public Use
  Company Number: GB-ROCHE-2436941

PATIENT
  Age: 72 Year
  Sex: Male
  Weight: 63.8 kg

DRUGS (36)
  1. POLATUZUMAB VEDOTIN [Suspect]
     Active Substance: POLATUZUMAB VEDOTIN
     Indication: Diffuse large B-cell lymphoma
     Dosage: IV INFUSION AT DOSE 1.8 MG/KG ON DAY 1 OF EACH 28-DAY CYCLE FOR UP TO 6 MONTHS DURING INDUCTION TREA
     Route: 042
     Dates: start: 20190926
  2. RITUXIMAB [Suspect]
     Active Substance: RITUXIMAB
     Indication: Diffuse large B-cell lymphoma
     Dosage: DATE OF MOST RECENT DOSE OF RITUXIMAB (670 MG) PRIOR TO AE ONSET WAS ON 26/SEP/2019.
     Route: 041
     Dates: start: 20190926
  3. LENALIDOMIDE [Suspect]
     Active Substance: LENALIDOMIDE
     Indication: Diffuse large B-cell lymphoma
     Dosage: DATE OF MOST RECENT DOSE OF LENALIDOMIDE (20 MG) PRIOR TO SAE ONSET: 06/OCT/2019.?DATE OF MOST RECEN
     Route: 048
     Dates: start: 20190926
  4. EDOXABAN [Concomitant]
     Active Substance: EDOXABAN
     Indication: Atrial flutter
     Dates: start: 20181121
  5. OMEPRAZOLE [Concomitant]
     Active Substance: OMEPRAZOLE
     Indication: Dyspepsia
     Dates: start: 20190314, end: 20191012
  6. DIGOXIN [Concomitant]
     Active Substance: DIGOXIN
     Indication: Atrial flutter
     Dates: start: 20190329, end: 201908
  7. DIGOXIN [Concomitant]
     Active Substance: DIGOXIN
     Dates: start: 201910
  8. VERAPAMIL [Concomitant]
     Active Substance: VERAPAMIL HYDROCHLORIDE
     Indication: Atrial flutter
     Dates: start: 20190329
  9. FUROSEMIDE [Concomitant]
     Active Substance: FUROSEMIDE
     Indication: Atrial flutter
     Dates: start: 20190521
  10. GLICLAZIDE [Concomitant]
     Active Substance: GLICLAZIDE
     Indication: Steroid diabetes
     Dates: start: 20190612
  11. PREDNISOLONE [Concomitant]
     Active Substance: PREDNISOLONE
     Indication: Carpal tunnel syndrome
     Dates: start: 201906, end: 20190925
  12. PREDNISOLONE [Concomitant]
     Active Substance: PREDNISOLONE
     Indication: Neoplasm malignant
  13. ACYCLOVIR [Concomitant]
     Active Substance: ACYCLOVIR
     Dates: start: 20190926
  14. ALLOPURINOL [Concomitant]
     Active Substance: ALLOPURINOL
     Dates: start: 20190926
  15. ONDANSETRON [Concomitant]
     Active Substance: ONDANSETRON
     Dates: start: 201910
  16. RANITIDINE [Concomitant]
     Active Substance: RANITIDINE
     Indication: Dyspepsia
     Dates: start: 201910, end: 201910
  17. ALBUTEROL [Concomitant]
     Active Substance: ALBUTEROL
     Indication: Dyspnoea
     Dates: start: 20191024
  18. GENTAMICIN [Concomitant]
     Active Substance: GENTAMICIN
     Indication: Infection prophylaxis
     Dates: start: 20191129, end: 20191129
  19. FILGRASTIM [Concomitant]
     Active Substance: FILGRASTIM
     Indication: Neutropenia
     Dates: start: 20191119, end: 20191122
  20. HUMAN RED BLOOD CELL [Concomitant]
     Active Substance: HUMAN RED BLOOD CELL
     Indication: Anaemia
     Dates: start: 20191120, end: 20191120
  21. DEGARELIX [Concomitant]
     Active Substance: DEGARELIX
     Indication: Prostate cancer
     Dates: start: 20191206
  22. PENICILLIN G SODIUM [Concomitant]
     Active Substance: PENICILLIN G SODIUM
     Indication: COVID-19 pneumonia
     Dates: start: 20200712, end: 20200713
  23. CLARITHROMYCIN [Concomitant]
     Active Substance: CLARITHROMYCIN
     Indication: COVID-19 pneumonia
     Dates: start: 20200712, end: 20200714
  24. CEFTRIAXONE [Concomitant]
     Active Substance: CEFTRIAXONE
     Indication: COVID-19 pneumonia
     Dates: start: 20200713, end: 20200713
  25. MORPHINE SULFATE [Concomitant]
     Active Substance: MORPHINE SULFATE
     Indication: COVID-19 pneumonia
     Dates: start: 20200712, end: 20200713
  26. ACETAMINOPHEN [Concomitant]
     Active Substance: ACETAMINOPHEN
     Indication: COVID-19 pneumonia
     Route: 048
     Dates: start: 20190926, end: 20190926
  27. ACETAMINOPHEN [Concomitant]
     Active Substance: ACETAMINOPHEN
     Dates: start: 20200712, end: 20200714
  28. ACETAMINOPHEN [Concomitant]
     Active Substance: ACETAMINOPHEN
     Route: 048
     Dates: start: 20191024, end: 20191024
  29. ACETAMINOPHEN [Concomitant]
     Active Substance: ACETAMINOPHEN
     Route: 048
     Dates: start: 20191128, end: 20191128
  30. OXYCODONE HYDROCHLORIDE [Concomitant]
     Active Substance: OXYCODONE HYDROCHLORIDE
     Indication: COVID-19 pneumonia
     Dates: start: 20200714, end: 20200715
  31. METHYLPREDNISOLONE [Concomitant]
     Active Substance: METHYLPREDNISOLONE
     Indication: Premedication
     Route: 042
     Dates: start: 20190926, end: 20190926
  32. CHLORPHENIRAMINE MALEATE [Concomitant]
     Active Substance: CHLORPHENIRAMINE MALEATE
     Indication: Premedication
     Route: 042
     Dates: start: 20190926, end: 20190926
  33. CHLORPHENIRAMINE MALEATE [Concomitant]
     Active Substance: CHLORPHENIRAMINE MALEATE
     Route: 042
     Dates: start: 20191024, end: 20191024
  34. CHLORPHENIRAMINE MALEATE [Concomitant]
     Active Substance: CHLORPHENIRAMINE MALEATE
     Route: 042
     Dates: start: 20191128, end: 20191128
  35. COTRIMOXAZOLE [Concomitant]
     Active Substance: SULFAMETHOXAZOLE\TRIMETHOPRIM
     Indication: Infection prophylaxis
     Dates: start: 20190926, end: 20191012
  36. COTRIMOXAZOLE [Concomitant]
     Active Substance: SULFAMETHOXAZOLE\TRIMETHOPRIM
     Dates: start: 20191024

REACTIONS (2)
  - Pulmonary embolism [Not Recovered/Not Resolved]
  - Acute kidney injury [Recovered/Resolved]

NARRATIVE: CASE EVENT DATE: 20191006
